FAERS Safety Report 15858985 (Version 1)
Quarter: 2018Q4

REPORT INFORMATION
  Report Type: Spontaneous
  Country: US (occurrence: US)
  Receive Date: 20181228
  Receipt Date: 20181228
  Transmission Date: 20190205
  Serious: Yes (Hospitalization, Disabling)
  Sender: FDA-Public Use
  Company Number: None

PATIENT

DRUGS (2)
  1. ZOLOFT [Suspect]
     Active Substance: SERTRALINE HYDROCHLORIDE
     Indication: OBSESSIVE-COMPULSIVE DISORDER
     Dosage: ?          QUANTITY:125 MG DAILY;OTHER FREQUENCY:DAILY @ H.S;?
     Route: 048
     Dates: end: 20180904
  2. ZOLOFT [Suspect]
     Active Substance: SERTRALINE HYDROCHLORIDE
     Indication: MENOPAUSAL SYMPTOMS
     Dosage: ?          QUANTITY:125 MG DAILY;OTHER FREQUENCY:DAILY @ H.S;?
     Route: 048
     Dates: end: 20180904

REACTIONS (5)
  - Subarachnoid haemorrhage [None]
  - Reversible cerebral vasoconstriction syndrome [None]
  - Speech disorder [None]
  - Amnesia [None]
  - Dysphagia [None]

NARRATIVE: CASE EVENT DATE: 20180509
